FAERS Safety Report 8679411 (Version 3)
Quarter: 2012Q4

REPORT INFORMATION
  Report Type: 
  Country: JP (occurrence: JP)
  Receive Date: 20120724
  Receipt Date: 20121227
  Transmission Date: 20130627
  Serious: Yes (Death)
  Sender: FDA-Public Use
  Company Number: JP-ASTELLAS-2012JP006648

PATIENT
  Age: 63 Year
  Sex: Male
  Weight: 63 kg

DRUGS (17)
  1. FUNGUARD [Suspect]
     Indication: FEBRILE NEUTROPENIA
     Dosage: 100 mg, UID/QD
     Route: 041
     Dates: start: 20100122, end: 20100125
  2. FUNGUARD [Suspect]
     Dosage: 150 mg, UID/QD
     Route: 041
     Dates: start: 20100203, end: 20100225
  3. ZOSYN [Concomitant]
     Indication: FEBRILE NEUTROPENIA
     Dosage: 2.25 g, tid
     Route: 042
     Dates: start: 20100103, end: 20100108
  4. ZOSYN [Concomitant]
     Dosage: 2.25 g, tid
     Route: 042
     Dates: start: 20100215, end: 20100225
  5. CIPROXAN                           /00697202/ [Concomitant]
     Indication: FEBRILE NEUTROPENIA
     Dosage: 200 mg, bid
     Route: 042
     Dates: start: 20100103, end: 20100115
  6. OMEPRAL /00661201/ [Concomitant]
     Indication: PROPHYLAXIS AGAINST GASTROINTESTINAL ULCER
     Dosage: 20 mg, bid
     Route: 042
     Dates: start: 20100103, end: 20100125
  7. NEUART [Concomitant]
     Indication: DISSEMINATED INTRAVASCULAR COAGULATION
     Dosage: 3000 IU, UID/QD
     Route: 042
     Dates: start: 20100105, end: 20100107
  8. ADRIACIN [Concomitant]
     Indication: DIFFUSE LARGE B-CELL LYMPHOMA
     Dosage: 17 mg, UID/QD
     Route: 042
     Dates: start: 20100105, end: 20100110
  9. LASTET [Concomitant]
     Indication: DIFFUSE LARGE B-CELL LYMPHOMA
     Dosage: 66 mg, UID/QD
     Route: 042
     Dates: start: 20100105, end: 20100110
  10. ONCOVIN [Concomitant]
     Indication: DIFFUSE LARGE B-CELL LYMPHOMA
     Dosage: 0.7 mg, UID/QD
     Route: 042
     Dates: start: 20100105, end: 20100110
  11. PREDONINE                          /00016203/ [Concomitant]
     Indication: DIFFUSE LARGE B-CELL LYMPHOMA
     Dosage: 40 mg, bid
     Route: 042
     Dates: start: 20100105, end: 20100110
  12. ENDOXAN /00021101/ [Concomitant]
     Indication: DIFFUSE LARGE B-CELL LYMPHOMA
     Dosage: 330 mg, UID/QD
     Route: 042
     Dates: start: 20100111, end: 20100111
  13. MAXIPIME [Concomitant]
     Indication: FEBRILE NEUTROPENIA
     Dosage: 2 g, bid
     Route: 042
     Dates: start: 20100109, end: 20100122
  14. VANCOMYCIN [Concomitant]
     Indication: FEBRILE NEUTROPENIA
     Dosage: 1 g, UID/QD
     Route: 042
     Dates: start: 20100116, end: 20100121
  15. AMBISOME [Concomitant]
     Indication: ZYGOMYCOSIS
     Dosage: 600 mg, UID/QD
     Route: 042
     Dates: start: 20100126, end: 20100225
  16. GRAN [Concomitant]
     Indication: FEBRILE NEUTROPENIA
     Dosage: 300 ug, UID/QD
     Route: 058
     Dates: start: 20100111, end: 20100122
  17. RITUXAN [Concomitant]
     Indication: DIFFUSE LARGE B-CELL LYMPHOMA
     Dosage: 670 mg, UID/QD
     Route: 042
     Dates: start: 20100106, end: 20100106

REACTIONS (2)
  - Off label use [Unknown]
  - Death [Fatal]
